FAERS Safety Report 7743328-X (Version None)
Quarter: 2011Q3

REPORT INFORMATION
  Report Type: 
  Country: None (occurrence: None)
  Receive Date: 20110826
  Receipt Date: 20110823
  Transmission Date: 20111222
  Serious: Yes (Hospitalization)
  Sender: FDA-Public Use
  Company Number: 2011SP037680

PATIENT
  Age: 66 Year
  Sex: Female

DRUGS (10)
  1. AMLODIPINE BESYLATE [Concomitant]
  2. DEXAMETHASONE ACETATE [Concomitant]
  3. ABT-888 [Suspect]
     Indication: GLIOBLASTOMA MULTIFORME
     Dosage: 10 MG;BID;PO
     Route: 048
     Dates: start: 20110622, end: 20110712
  4. OMEPRAZOLE [Concomitant]
  5. SIMVASTATIN [Concomitant]
  6. CYANOCOBALAMIN-TANNIN COMPLEX [Concomitant]
  7. TEMOZOLOMIDE [Suspect]
     Indication: GLIOBLASTOMA MULTIFORME
     Dosage: PO
     Route: 048
     Dates: start: 20110608
  8. ZESTORETIC [Concomitant]
  9. BENADRYL [Concomitant]
  10. ENOXAPARIN SODIUM [Concomitant]

REACTIONS (9)
  - ASTHENIA [None]
  - SYNCOPE [None]
  - SEPSIS [None]
  - PANCYTOPENIA [None]
  - COUGH [None]
  - LOSS OF CONSCIOUSNESS [None]
  - SINUS CONGESTION [None]
  - CHRONIC SINUSITIS [None]
  - HYPOVOLAEMIA [None]
